FAERS Safety Report 17850792 (Version 1)
Quarter: 2020Q2

REPORT INFORMATION
  Report Type: Spontaneous
  Country: US (occurrence: US)
  Receive Date: 20200602
  Receipt Date: 20200602
  Transmission Date: 20200714
  Serious: No
  Sender: FDA-Public Use
  Company Number: None

PATIENT
  Age: 65 Year
  Sex: Male

DRUGS (2)
  1. MORPHINE SUL TAB 15MG ER [Concomitant]
     Dates: start: 20200528
  2. CAPECITABINE. [Suspect]
     Active Substance: CAPECITABINE
     Indication: COLON CANCER
     Dosage: ?          OTHER FREQUENCY:TWICE DAILY;?
     Route: 048
     Dates: start: 20200601

REACTIONS (2)
  - Infusion related reaction [None]
  - Jaundice [None]

NARRATIVE: CASE EVENT DATE: 20200601
